FAERS Safety Report 12780962 (Version 1)
Quarter: 2016Q3

REPORT INFORMATION
  Report Type: Spontaneous
  Country: US (occurrence: US)
  Receive Date: 20160926
  Receipt Date: 20160926
  Transmission Date: 20161109
  Serious: Yes (Other)
  Sender: FDA-Public Use
  Company Number: US-TEVA-694866ACC

PATIENT
  Age: 32 Year
  Sex: Female
  Weight: 59.93 kg

DRUGS (2)
  1. PARAGARD T 380A [Suspect]
     Active Substance: COPPER
     Indication: CONTRACEPTION
     Dates: start: 20160908, end: 20160913
  2. PRENATAL VITAMINS [Concomitant]
     Active Substance: VITAMINS

REACTIONS (7)
  - Pyrexia [Recovered/Resolved]
  - C-reactive protein increased [Unknown]
  - Exposure during breast feeding [Unknown]
  - Endometritis [Unknown]
  - White blood cell count increased [Unknown]
  - Pelvic pain [Not Recovered/Not Resolved]
  - Red blood cell sedimentation rate increased [Unknown]

NARRATIVE: CASE EVENT DATE: 20160908
